FAERS Safety Report 4865436-3 (Version None)
Quarter: 2005Q4

REPORT INFORMATION
  Report Type: 
  Country: None (occurrence: None)
  Receive Date: 20051219
  Receipt Date: 20051209
  Transmission Date: 20060501
  Serious: Yes (Hospitalization)
  Sender: FDA-Public Use
  Company Number: ACO_0202_2005

PATIENT
  Age: 49 Year
  Sex: Male

DRUGS (7)
  1. SIRDALUD [Suspect]
     Indication: PAIN IN EXTREMITY
     Dosage: 4 MG QDAY, PO
     Route: 048
     Dates: start: 20050824, end: 20050826
  2. BRUFEN [Suspect]
     Indication: PAIN IN EXTREMITY
     Dosage: 800 MG QDAY
     Dates: start: 20050824, end: 20050826
  3. BRUFEN [Suspect]
     Indication: PAIN IN EXTREMITY
     Dosage: DF
     Dates: start: 20050801, end: 20050815
  4. COZAAR [Concomitant]
  5. GLUCOPHAGE [Suspect]
  6. ZOCOR [Concomitant]
  7. ZYLORIC [Concomitant]

REACTIONS (4)
  - ACUTE FEBRILE NEUTROPHILIC DERMATOSIS [None]
  - FALL [None]
  - LEUKOCYTOSIS [None]
  - NEUTROPHILIA [None]
